FAERS Safety Report 21579009 (Version 2)
Quarter: 2023Q1

REPORT INFORMATION
  Report Type: Spontaneous
  Country: US (occurrence: US)
  Receive Date: 20221110
  Receipt Date: 20230330
  Transmission Date: 20230418
  Serious: No
  Sender: FDA-Public Use
  Company Number: US-SA-SAC20221108000271

PATIENT
  Sex: Male

DRUGS (6)
  1. DUPIXENT [Suspect]
     Active Substance: DUPILUMAB
     Indication: Dermatitis atopic
     Dosage: 300 MG, QOW
     Route: 058
  2. CLOBETASOL PROPIONATE [Concomitant]
     Active Substance: CLOBETASOL PROPIONATE
     Dosage: SOLUTION
  3. DESLORATADINE [Concomitant]
     Active Substance: DESLORATADINE
  4. TACROLIMUS [Concomitant]
     Active Substance: TACROLIMUS
  5. OPZELURA [Concomitant]
     Active Substance: RUXOLITINIB PHOSPHATE
  6. DESOXIMETASONE [Concomitant]
     Active Substance: DESOXIMETASONE

REACTIONS (2)
  - Eye disorder [Unknown]
  - Eye inflammation [Unknown]
